FAERS Safety Report 18277418 (Version 3)
Quarter: 2020Q4

REPORT INFORMATION
  Report Type: Report from Study
  Country: US (occurrence: US)
  Receive Date: 20200917
  Receipt Date: 20201229
  Transmission Date: 20210113
  Serious: Yes (Other)
  Sender: FDA-Public Use
  Company Number: US-GILEAD-2020-0486570

PATIENT
  Age: 65 Year
  Sex: Male

DRUGS (5)
  1. IDELALISIB [Suspect]
     Active Substance: IDELALISIB
     Dosage: 150 UNK
     Route: 048
     Dates: start: 20200723
  2. IDELALISIB [Suspect]
     Active Substance: IDELALISIB
     Dosage: 150 MG, BID
     Route: 048
     Dates: start: 20200615, end: 20200720
  3. IDELALISIB [Suspect]
     Active Substance: IDELALISIB
     Indication: FOLLICLE CENTRE LYMPHOMA, FOLLICULAR GRADE I, II, III
     Dosage: 150 MG, QD
     Route: 048
     Dates: start: 20200615
  4. IDELALISIB [Suspect]
     Active Substance: IDELALISIB
     Dosage: 1 TABLET ONCE A DAY
     Route: 048
  5. IDELALISIB [Suspect]
     Active Substance: IDELALISIB
     Dosage: 150 MG, BID
     Route: 048
     Dates: end: 20200713

REACTIONS (6)
  - Product dose omission issue [Recovered/Resolved]
  - Hepatic enzyme increased [Recovered/Resolved]
  - Malignant neoplasm progression [Unknown]
  - Product use issue [Unknown]
  - Off label use [Not Recovered/Not Resolved]
  - Musculoskeletal stiffness [Not Recovered/Not Resolved]

NARRATIVE: CASE EVENT DATE: 202008
